FAERS Safety Report 9189599 (Version 2)
Quarter: 2013Q3

REPORT INFORMATION
  Report Type: Spontaneous
  Country: US (occurrence: US)
  Receive Date: 20130326
  Receipt Date: 20130708
  Transmission Date: 20140515
  Serious: Yes (Hospitalization, Other)
  Sender: FDA-Public Use
  Company Number: US-JNJFOC-20130311141

PATIENT
  Age: 75 Year
  Sex: Male
  Weight: 96.62 kg

DRUGS (42)
  1. REMICADE [Suspect]
     Indication: CROHN^S DISEASE
     Route: 042
     Dates: start: 200807
  2. REMICADE [Suspect]
     Indication: CROHN^S DISEASE
     Dosage: START DATE: APPROXIMATELY 9 TO 10 YEARS PRIOR TO THE DATE OF REPORT
     Route: 042
     Dates: start: 2003
  3. IMODIUM [Suspect]
     Indication: FREQUENT BOWEL MOVEMENTS
     Dosage: 1 TABLET UPTO 8 DAILY AS NEEDED
     Route: 048
  4. ASACOL [Suspect]
     Indication: PRODUCT USED FOR UNKNOWN INDICATION
     Dosage: 400MG DELAYED RELEASE, 4 TABLETS TWICE A DAY
     Route: 048
     Dates: start: 2009
  5. PREDNISONE [Suspect]
     Indication: PRODUCT USED FOR UNKNOWN INDICATION
     Dosage: ON AND OFF TREATMENT; WITH MEAL
     Route: 048
     Dates: start: 2009, end: 2013
  6. FLOMAX [Concomitant]
     Dosage: 0.8 (UNITS UNSPECIFIED) AT BEDTIME
     Route: 048
  7. FLOMAX [Concomitant]
     Route: 048
  8. VITAMIN B COMPLEX [Concomitant]
     Route: 048
  9. BETAMETHASONE VALERATE [Concomitant]
     Route: 061
  10. BUTALBITAL ACETAMINOPHEN CAFFEINE [Concomitant]
     Dosage: 50-325-40MG
     Route: 048
  11. CIPRO [Concomitant]
     Route: 048
  12. CLARITIN [Concomitant]
     Route: 048
  13. CLOTRIMAZOLE-BETAMETHASONE [Concomitant]
     Dosage: 1-0.05%
     Route: 065
  14. DENAVIR [Concomitant]
     Route: 065
  15. FLAGYL [Concomitant]
     Route: 048
  16. FOLIC ACID [Concomitant]
     Route: 048
  17. GABAPENTIN [Concomitant]
     Route: 048
  18. HEPARIN [Concomitant]
     Dosage: 20,000UNITS/ML
     Route: 065
  19. LASIX [Concomitant]
     Route: 048
  20. LOTRISONE [Concomitant]
     Dosage: 1-0.05% TO AFFECTED AREA
     Route: 065
  21. MEDROL [Concomitant]
     Dosage: 1 PACK AS DIRECTED
     Route: 065
  22. PROCHLORPERAZINE MALEATE [Concomitant]
     Indication: NAUSEA
     Dosage: AS WHEN NECESSARY
     Route: 048
  23. NORMAL SALINE SOLUTION [Concomitant]
     Route: 065
  24. TRICOR [Concomitant]
     Route: 048
  25. TROSPIUM [Concomitant]
     Route: 048
  26. TUMS [Concomitant]
     Route: 048
  27. VITAMIN C [Concomitant]
     Route: 048
  28. TOCOPHEROL [Concomitant]
     Route: 048
  29. FERROUS  SULFATE [Concomitant]
     Dosage: 325 (65)MG
     Route: 048
  30. IMODIUM MULTISYMPTOM RELIEF [Concomitant]
     Dosage: 2-125MG
     Route: 048
  31. NEURONTIN [Concomitant]
     Route: 048
  32. NEXIUM [Concomitant]
     Route: 048
  33. PRILOSEC [Concomitant]
     Route: 048
  34. TOPROL XL [Concomitant]
     Route: 048
  35. COUMADIN [Concomitant]
     Dosage: 5MG EVERY OTHER DAY ALTERNATING WITH 7.5MG EVERY OTHER DAY.
     Route: 065
  36. FERROUS GLUCONATE [Concomitant]
     Route: 065
  37. FIORINAL NOS [Concomitant]
     Route: 065
  38. FLEXERIL [Concomitant]
     Route: 065
  39. GLUCOSAMINE / CHONDROITIN [Concomitant]
     Route: 065
  40. LYRICA [Concomitant]
     Dosage: AT BEDTIME
     Route: 065
  41. SANCTURA [Concomitant]
     Route: 065
  42. TRICOR [Concomitant]
     Route: 065

REACTIONS (2)
  - Acute myeloid leukaemia [Unknown]
  - Intestinal obstruction [Unknown]
